FAERS Safety Report 4584222-5 (Version None)
Quarter: 2005Q1

REPORT INFORMATION
  Report Type: 
  Country: None (occurrence: None)
  Receive Date: 20050216
  Receipt Date: 20050121
  Transmission Date: 20050727
  Serious: Yes (Hospitalization, Other)
  Sender: FDA-Public Use
  Company Number: JP-BRISTOL-MYERS SQUIBB COMPANY-12832580

PATIENT
  Age: 60 Year
  Sex: Male

DRUGS (6)
  1. PARAPLATIN [Suspect]
     Indication: LUNG NEOPLASM MALIGNANT
     Route: 042
     Dates: start: 20040615, end: 20040615
  2. GEMCITABINE HCL [Suspect]
     Indication: LUNG NEOPLASM MALIGNANT
     Route: 042
     Dates: start: 20040622, end: 20040622
  3. AMLODIPINE BESYLATE [Concomitant]
  4. DOXAZOSIN MESYLATE [Concomitant]
  5. VOGLIBOSE [Concomitant]
  6. GLIBENCLAMIDE [Concomitant]

REACTIONS (7)
  - DISSEMINATED INTRAVASCULAR COAGULATION [None]
  - DUODENITIS [None]
  - GASTRITIS [None]
  - GASTROENTERITIS STAPHYLOCOCCAL [None]
  - PLATELET COUNT DECREASED [None]
  - PYREXIA [None]
  - RED BLOOD CELL COUNT DECREASED [None]
